FAERS Safety Report 15564560 (Version 1)
Quarter: 2018Q4

REPORT INFORMATION
  Report Type: Spontaneous
  Country: PR (occurrence: PR)
  Receive Date: 20181024
  Receipt Date: 20181024
  Transmission Date: 20190205
  Serious: No
  Sender: FDA-Public Use
  Company Number: None

PATIENT
  Age: 55 Day
  Sex: Female
  Weight: 55.35 kg

DRUGS (2)
  1. PROLIA [Suspect]
     Active Substance: DENOSUMAB
     Indication: OSTEOPOROSIS
     Dosage: ?          OTHER ROUTE:INYECCI?N?
     Dates: start: 20180828
  2. VITAMIN D CALTRATE [Concomitant]

REACTIONS (1)
  - Eye haemorrhage [None]

NARRATIVE: CASE EVENT DATE: 20180920
